FAERS Safety Report 18204418 (Version 2)
Quarter: 2020Q3

REPORT INFORMATION
  Report Type: Spontaneous
  Country: IE (occurrence: IE)
  Receive Date: 20200827
  Receipt Date: 20200930
  Transmission Date: 20201103
  Serious: Yes (Death, Hospitalization)
  Sender: FDA-Public Use
  Company Number: IE-VERTEX PHARMACEUTICALS-2020-017121

PATIENT
  Age: 20 Year
  Sex: Male

DRUGS (8)
  1. NEBUSAL [Concomitant]
     Active Substance: SODIUM CHLORIDE
     Dosage: NEBLIZER
  2. CREON [Concomitant]
     Active Substance: PANCRELIPASE AMYLASE\PANCRELIPASE LIPASE\PANCRELIPASE PROTEASE
     Dosage: UNK, TID
  3. CIPROFLOXACIN. [Concomitant]
     Active Substance: CIPROFLOXACIN
     Dosage: 400 MG, BID, DISCONTINED
     Route: 042
  4. VITAMIN K [Concomitant]
     Active Substance: PHYTONADIONE
     Dosage: 1 MG, QD
  5. KALYDECO [Suspect]
     Active Substance: IVACAFTOR
     Indication: CYSTIC FIBROSIS
     Dosage: 150 MG
     Route: 048
     Dates: start: 20200811, end: 20200816
  6. DEKAS PLUS [Concomitant]
     Dosage: UNK, QD
  7. AMIKACIN. [Concomitant]
     Active Substance: AMIKACIN
     Dosage: UNK UNK, QD
  8. PULMOZYME [Concomitant]
     Active Substance: DORNASE ALFA
     Dosage: UNK, QD

REACTIONS (1)
  - Oxygen saturation decreased [Fatal]

NARRATIVE: CASE EVENT DATE: 20200816
